FAERS Safety Report 22187646 (Version 1)
Quarter: 2023Q2

REPORT INFORMATION
  Report Type: Spontaneous
  Country: US (occurrence: US)
  Receive Date: 20230407
  Receipt Date: 20230407
  Transmission Date: 20230722
  Serious: No
  Sender: FDA-Public Use
  Company Number: US-ABBVIE-4345772

PATIENT
  Age: 50 Year
  Sex: Female

DRUGS (1)
  1. HUMIRA [Suspect]
     Active Substance: ADALIMUMAB
     Indication: Rheumatoid arthritis
     Route: 058
     Dates: start: 2020

REACTIONS (17)
  - Fatigue [Not Recovered/Not Resolved]
  - Dry skin [Recovered/Resolved]
  - Lip dry [Recovered/Resolved]
  - Night sweats [Unknown]
  - Crying [Unknown]
  - Anger [Unknown]
  - Memory impairment [Unknown]
  - Anxiety [Unknown]
  - Asthenia [Unknown]
  - Decreased appetite [Unknown]
  - Taste disorder [Unknown]
  - Cold sweat [Unknown]
  - Migraine [Unknown]
  - Cough [Unknown]
  - Sputum discoloured [Unknown]
  - Mood swings [Unknown]
  - Depression [Unknown]

NARRATIVE: CASE EVENT DATE: 20230201
